FAERS Safety Report 19826344 (Version 1)
Quarter: 2021Q3

REPORT INFORMATION
  Report Type: Spontaneous
  Country: US (occurrence: US)
  Receive Date: 20210914
  Receipt Date: 20210914
  Transmission Date: 20211014
  Serious: Yes (Other)
  Sender: FDA-Public Use
  Company Number: US-JNJFOC-20210900435

PATIENT
  Sex: Female

DRUGS (1)
  1. NEUTROGENA SPORT FACE OIL FREE SUNSCRN BR^D SPECT SPF 70 + (AV\HOM\OCTI\OCTO\OX) [Suspect]
     Active Substance: AVOBENZONE\HOMOSALATE\OCTISALATE\OCTOCRYLENE\OXYBENZONE
     Indication: PROPHYLAXIS AGAINST SOLAR RADIATION
     Dosage: USED YEARS
     Route: 061

REACTIONS (1)
  - Skin cancer [Recovered/Resolved]
